FAERS Safety Report 9716146 (Version 2)
Quarter: 2013Q4

REPORT INFORMATION
  Report Type: Report from Study
  Country: JP (occurrence: JP)
  Receive Date: 20131127
  Receipt Date: 20131127
  Transmission Date: 20140711
  Serious: Yes (Death, Other)
  Sender: FDA-Public Use
  Company Number: JP-009507513-1307JPN004482

PATIENT
  Age: 37 Year
  Sex: Female
  Weight: 52 kg

DRUGS (34)
  1. TEMODAL [Suspect]
     Indication: ANAPLASTIC ASTROCYTOMA
     Dosage: 75 MG/M2, QD
     Route: 048
     Dates: start: 20120704, end: 20120814
  2. TEMODAL [Suspect]
     Dosage: 150 MG/M2, QD
     Route: 048
     Dates: start: 20120912, end: 20120916
  3. TEMODAL [Suspect]
     Dosage: 150 MG/M2, QD
     Route: 048
     Dates: start: 20121010, end: 20121014
  4. TEMODAL [Suspect]
     Dosage: 150 MG/M2, QD
     Route: 048
     Dates: start: 20121108, end: 20121112
  5. TEMODAL [Suspect]
     Dosage: 150 MG/M2, QD
     Route: 048
     Dates: start: 20121206, end: 20121210
  6. TEMODAL [Suspect]
     Dosage: 150 MG/M2, QD
     Route: 048
     Dates: start: 20130103, end: 20130107
  7. TEMODAL [Suspect]
     Dosage: 150 MG/M2, QD
     Route: 048
     Dates: start: 20130131, end: 20130204
  8. TEMODAL [Suspect]
     Dosage: 150 MG/M2, QD
     Route: 048
     Dates: start: 20130228, end: 20130304
  9. TEMODAL [Suspect]
     Dosage: 200 MG/M2, QD
     Route: 048
     Dates: start: 20130406, end: 20130410
  10. TEMODAL [Suspect]
     Dosage: 200 MG/M2, QD
     Route: 048
     Dates: start: 20130504, end: 20130508
  11. TEMODAL [Suspect]
     Dosage: 150 MG/M2, QD
     Route: 048
     Dates: start: 20130601, end: 20130605
  12. TEMODAL [Suspect]
     Dosage: 150 MG/M2, QD
     Route: 048
     Dates: start: 20130629, end: 20130703
  13. BAKTAR [Concomitant]
     Indication: ANTIFUNGAL PROPHYLAXIS
     Dosage: DAILY DOSE UNKNOWN
     Route: 048
     Dates: start: 20120704
  14. BAKTAR [Concomitant]
     Indication: NEUTROPHIL COUNT INCREASED
  15. BAKTAR [Concomitant]
     Indication: LYMPHOCYTE COUNT DECREASED
  16. PRIMPERAN [Concomitant]
     Indication: PROPHYLAXIS
     Dosage: DAILY DOSE UNKNOWN
     Route: 048
     Dates: start: 20120703, end: 20120809
  17. PRIMPERAN [Concomitant]
     Indication: VOMITING
  18. OMEPRAL [Concomitant]
     Indication: PROPHYLAXIS
     Dosage: DAILY DOSE UNKNOWN
     Route: 048
     Dates: start: 20120703, end: 20121005
  19. ZOFRAN ZYDIS [Concomitant]
     Indication: PROPHYLAXIS
     Dosage: DAILY DOSE UNKNOWN
     Route: 048
     Dates: start: 20120704
  20. FERRUM (FERROUS FUMARATE) [Concomitant]
     Indication: PROPHYLAXIS
     Dosage: DAILY DOSE UNKNOWN
     Route: 048
     Dates: start: 20120710, end: 20121005
  21. DEXAMETHASONE [Concomitant]
     Indication: PROPHYLAXIS
     Dosage: DAILY DOSE UNKNOWN
     Route: 048
     Dates: start: 20120711, end: 20121005
  22. MAGMITT [Concomitant]
     Indication: CONSTIPATION
     Dosage: DAILY DOSE UNKNOWN
     Route: 048
     Dates: start: 20120727
  23. PURSENNID (SENNOSIDES) [Concomitant]
     Indication: CONSTIPATION
     Dosage: DAILY DOSE UNKNOWN
     Route: 048
     Dates: start: 20120831
  24. LYRICA [Concomitant]
     Dosage: DAILY DOSE UNKNOWN
     Route: 048
     Dates: start: 20121228
  25. KEPPRA [Concomitant]
     Indication: PROPHYLAXIS
     Dosage: DAILY DOSE UNKNOWN
     Route: 048
     Dates: start: 20130212
  26. RINDERON (BETAMETHASONE) [Concomitant]
     Indication: PROPHYLAXIS
     Dosage: DAILY DOSE UNKNOWN
     Route: 048
     Dates: start: 20130212
  27. RINDERON (BETAMETHASONE) [Concomitant]
     Indication: INTRACRANIAL PRESSURE INCREASED
  28. NEUROTROPIN [Concomitant]
     Dosage: DAILY DOSE UNKNOWN
     Route: 048
     Dates: start: 20130218
  29. NORITREN [Concomitant]
     Dosage: DAILY DOSE UNKNOWN
     Route: 048
     Dates: start: 20130218
  30. METHYCOBAL [Concomitant]
     Dosage: DAILY DOSE UNKNOWN
     Route: 048
     Dates: start: 20130218
  31. LACTULOSE [Concomitant]
     Indication: VOMITING
     Dosage: DAILY DOSE UNKNOWN
     Route: 048
     Dates: start: 20130510
  32. NEXIUM [Concomitant]
     Indication: PROPHYLAXIS
     Dosage: DAILY DOSE UNKNOWN
     Route: 048
     Dates: start: 20130526
  33. ISOBIDE [Concomitant]
     Indication: INTRACRANIAL PRESSURE INCREASED
     Dosage: DAILY DOSE UNKNOWN
     Route: 048
     Dates: start: 20130527
  34. AVASTIN (BEVACIZUMAB) [Concomitant]
     Indication: INTRACRANIAL PRESSURE INCREASED
     Dosage: DAILY DOSE UNKNOWN
     Route: 042

REACTIONS (11)
  - Disease progression [Fatal]
  - Neutrophil count increased [Not Recovered/Not Resolved]
  - Lymphocyte count decreased [Not Recovered/Not Resolved]
  - Intracranial pressure increased [Recovering/Resolving]
  - Constipation [Recovering/Resolving]
  - Vomiting [Recovering/Resolving]
  - Platelet count decreased [Not Recovered/Not Resolved]
  - Aspartate aminotransferase increased [Not Recovered/Not Resolved]
  - Alanine aminotransferase increased [Not Recovered/Not Resolved]
  - Gamma-glutamyltransferase increased [Not Recovered/Not Resolved]
  - Blood cholesterol increased [Not Recovered/Not Resolved]
